FAERS Safety Report 8365796-5 (Version None)
Quarter: 2012Q2

REPORT INFORMATION
  Report Type: 
  Country: None (occurrence: None)
  Receive Date: 20120517
  Receipt Date: 20120507
  Transmission Date: 20120825
  Serious: Yes (Other)
  Sender: FDA-Public Use
  Company Number: DE-AMGEN-DEUSP2012026472

PATIENT
  Age: 45 Year
  Sex: Female

DRUGS (6)
  1. ENBREL [Suspect]
     Indication: RHEUMATOID ARTHRITIS
     Dosage: 50 MG, WEEKLY
     Dates: start: 20110815
  2. IBUPROFEN [Concomitant]
     Dosage: UNK
  3. SULFASALAZINE [Concomitant]
     Dosage: UNK
  4. ACTONEL [Concomitant]
     Dosage: UNK
  5. CELEBREX [Concomitant]
     Dosage: UNK
  6. SYMBICORT [Concomitant]
     Dosage: UNK

REACTIONS (1)
  - HAEMATOCHEZIA [None]
